FAERS Safety Report 6910581-1 (Version None)
Quarter: 2010Q3

REPORT INFORMATION
  Report Type: 
  Country: None (occurrence: None)
  Receive Date: 20100806
  Receipt Date: 20100729
  Transmission Date: 20110219
  Serious: Yes (Hospitalization)
  Sender: FDA-Public Use
  Company Number: FR-PFIZER INC-2010095275

PATIENT
  Age: 70 Year
  Sex: Female

DRUGS (11)
  1. AMLOR [Suspect]
     Dosage: UNK
     Route: 048
     Dates: end: 20100601
  2. SOTALEX [Suspect]
     Dosage: UNK
     Route: 048
     Dates: end: 20100601
  3. MABTHERA [Suspect]
     Dosage: 1 G, UNK
     Route: 042
     Dates: start: 20071206
  4. ARAVA [Concomitant]
     Dosage: 20 MG, PER DAY
     Route: 048
     Dates: start: 20070101
  5. CORTANCYL [Concomitant]
     Dosage: 5 MG, PER DAY
     Route: 048
     Dates: start: 20070101
  6. NEXIUM [Concomitant]
  7. ISOPTIN [Concomitant]
  8. SINGULAIR ^DIECKMANN^ [Concomitant]
  9. ZOLPIDEM [Concomitant]
  10. ACTONEL [Concomitant]
  11. BECLOMETASON/FORMOTEROL [Concomitant]

REACTIONS (2)
  - LUNG DISORDER [None]
  - LYMPHOPENIA [None]
